FAERS Safety Report 6084821-8 (Version None)
Quarter: 2009Q1

REPORT INFORMATION
  Report Type: 
  Country: None (occurrence: None)
  Receive Date: 20090218
  Receipt Date: 20090205
  Transmission Date: 20090719
  Serious: Yes (Hospitalization)
  Sender: FDA-Public Use
  Company Number: 220057K08USA

PATIENT
  Age: 5 Year
  Sex: Male
  Weight: 17 kg

DRUGS (2)
  1. SAIZEN [Suspect]
     Indication: GROWTH HORMONE DEFICIENCY
     Dosage: 0.15 MG, 1 IN 1 DAYS, SUBCUTANEOUS, 0.15 MG, 1 IN 1 DAYS, SUBCUTANEOUS
     Route: 058
     Dates: start: 20080330, end: 20080801
  2. SAIZEN [Suspect]
     Indication: GROWTH HORMONE DEFICIENCY
     Dosage: 0.15 MG, 1 IN 1 DAYS, SUBCUTANEOUS, 0.15 MG, 1 IN 1 DAYS, SUBCUTANEOUS
     Route: 058
     Dates: start: 20080907

REACTIONS (5)
  - HEADACHE [None]
  - LETHARGY [None]
  - NAUSEA [None]
  - SHUNT MALFUNCTION [None]
  - VOMITING [None]
